FAERS Safety Report 11582808 (Version 1)
Quarter: 2015Q3

REPORT INFORMATION
  Report Type: Spontaneous
  Country: US (occurrence: None)
  Receive Date: 20150930
  Receipt Date: 20150930
  Transmission Date: 20151125
  Serious: No
  Sender: FDA-Public Use
  Company Number: None

PATIENT
  Age: 50 Year
  Sex: Male

DRUGS (1)
  1. FIRMAGON [Suspect]
     Active Substance: DEGARELIX ACETATE
     Dosage: PT STATED USED FOR 1 YEAR NOW
     Route: 058

REACTIONS (2)
  - Weight increased [None]
  - Mood altered [None]

NARRATIVE: CASE EVENT DATE: 20150929
